FAERS Safety Report 9503017 (Version 2)
Quarter: 2013Q3

REPORT INFORMATION
  Report Type: Report from Study
  Country: DE (occurrence: DE)
  Receive Date: 20130906
  Receipt Date: 20130906
  Transmission Date: 20140515
  Serious: Yes (Other)
  Sender: FDA-Public Use
  Company Number: DE-ASTELLAS-2013EU005717

PATIENT
  Age: 65 Year
  Sex: Male
  Weight: 55.5 kg

DRUGS (12)
  1. TACROLIMUS MR4 CAPSULES [Suspect]
     Indication: RENAL TRANSPLANT
     Dosage: 9 MG, UID/QD
     Route: 048
     Dates: start: 20110311
  2. CELLCEPT /01275102/ [Suspect]
     Indication: RENAL TRANSPLANT
     Dosage: 500 MG, BID
     Route: 048
     Dates: start: 20110311
  3. THYMOGLOBULINE [Suspect]
     Indication: RENAL TRANSPLANT
     Dosage: 600 MG, UID/QD
     Route: 048
     Dates: start: 20110311
  4. PREDNISOLONE [Suspect]
     Indication: RENAL TRANSPLANT
     Dosage: 25 MG, UID/QD
     Route: 048
     Dates: start: 20110311
  5. COTRIM FORTE [Concomitant]
     Dosage: 460 MG, UNKNOWN/D
     Route: 065
     Dates: start: 20110312
  6. VALCYTE [Concomitant]
     Dosage: 450 MG, UNKNOWN/D
     Route: 065
     Dates: start: 20110312
  7. PANTOZOL                           /01263204/ [Concomitant]
     Dosage: 40 MG, UNKNOWN/D
     Route: 065
     Dates: start: 20110313
  8. LASIX                              /00032601/ [Concomitant]
     Dosage: 40 MG, UNKNOWN/D
     Route: 065
     Dates: start: 20110530, end: 20110629
  9. XIPAMID [Concomitant]
     Dosage: 20 MG, UNKNOWN/D
     Route: 065
     Dates: start: 20110530
  10. EUNERPAN [Concomitant]
     Dosage: 25 MG, UNKNOWN/D
     Route: 065
     Dates: start: 20110508
  11. NEPHROTRANS [Concomitant]
     Dosage: 1500 MG, UNKNOWN/D
     Route: 065
     Dates: start: 20110601
  12. ASS [Concomitant]
     Dosage: 100 MG, UNKNOWN/D
     Route: 065
     Dates: start: 20110527

REACTIONS (1)
  - Bone marrow toxicity [Unknown]
